FAERS Safety Report 15311432 (Version 1)
Quarter: 2018Q3

REPORT INFORMATION
  Report Type: Spontaneous
  Country: US (occurrence: US)
  Receive Date: 20180823
  Receipt Date: 20180823
  Transmission Date: 20181010
  Serious: No
  Sender: FDA-Public Use
  Company Number: US-ASTRAZENECA-2018SF06748

PATIENT
  Sex: Female

DRUGS (1)
  1. TUDORZA PRESSAIR [Suspect]
     Active Substance: ACLIDINIUM BROMIDE
     Dosage: 400.0UG UNKNOWN
     Route: 055
     Dates: start: 201507

REACTIONS (5)
  - Device malfunction [Not Recovered/Not Resolved]
  - Product use issue [Not Recovered/Not Resolved]
  - Dyspnoea [Unknown]
  - Drug dose omission [Unknown]
  - Intentional product misuse [Unknown]
